FAERS Safety Report 4282431-6 (Version None)
Quarter: 2004Q1

REPORT INFORMATION
  Report Type: 
  Country: None (occurrence: None)
  Receive Date: 20040129
  Receipt Date: 20040121
  Transmission Date: 20041129
  Serious: Yes (Hospitalization, Other)
  Sender: FDA-Public Use
  Company Number: US-JNJFOC-20040104823

PATIENT
  Sex: Male

DRUGS (4)
  1. ORTHO EVRA [Suspect]
     Indication: CONTRACEPTION
     Dosage: 1 DOSE(S), 3 IN 4 WEEK, TRANSDERMAL
     Route: 062
     Dates: start: 20020901, end: 20030401
  2. B12 (CYANOCOBALAMIN) [Concomitant]
  3. IRON (IRON) [Concomitant]
  4. PRENATAL VITAMIN (PRENATAL VITAMINS) [Concomitant]

REACTIONS (5)
  - CAESAREAN SECTION [None]
  - MATERNAL DRUGS AFFECTING FOETUS [None]
  - NEONATAL TACHYPNOEA [None]
  - PREMATURE BABY [None]
  - RESPIRATORY DISORDER NEONATAL [None]
